FAERS Safety Report 7721823-7 (Version None)
Quarter: 2011Q3

REPORT INFORMATION
  Report Type: 
  Country: None (occurrence: None)
  Receive Date: 20110831
  Receipt Date: 20110824
  Transmission Date: 20111222
  Serious: Yes (Other)
  Sender: FDA-Public Use
  Company Number: US-MERCK-1108USA03028

PATIENT
  Age: 53 Year
  Sex: Female
  Weight: 82 kg

DRUGS (6)
  1. LISINOPRIL [Concomitant]
     Indication: HYPERTENSION
     Route: 048
  2. ADVIL LIQUI-GELS [Suspect]
     Indication: PAIN
     Route: 048
     Dates: end: 20110802
  3. NEXIUM [Concomitant]
     Indication: ABDOMINAL DISCOMFORT
     Route: 065
  4. KLONOPIN [Concomitant]
     Route: 065
  5. ZOCOR [Suspect]
     Indication: BLOOD PRESSURE INCREASED
     Route: 048
     Dates: start: 20110801, end: 20110802
  6. ADVIL LIQUI-GELS [Suspect]
     Indication: HEADACHE
     Route: 048
     Dates: end: 20110802

REACTIONS (2)
  - ADVERSE DRUG REACTION [None]
  - BLOOD PRESSURE INCREASED [None]
